FAERS Safety Report 10496162 (Version 1)
Quarter: 2014Q4

REPORT INFORMATION
  Report Type: Spontaneous
  Country: CA (occurrence: CA)
  Receive Date: 20141003
  Receipt Date: 20141003
  Transmission Date: 20150528
  Serious: Yes (Hospitalization)
  Sender: FDA-Public Use
  Company Number: CA-ASTRAZENECA-2014SE72674

PATIENT
  Age: 82 Year
  Sex: Male

DRUGS (12)
  1. ATACAND [Suspect]
     Active Substance: CANDESARTAN CILEXETIL
     Indication: HYPERTENSION
     Route: 048
  2. SYMBICORT [Suspect]
     Active Substance: BUDESONIDE\FORMOTEROL FUMARATE DIHYDRATE
     Dosage: UNKNOWN DOSE AND FREQUENCY
     Route: 055
     Dates: start: 201408
  3. SEROQUEL [Suspect]
     Active Substance: QUETIAPINE FUMARATE
     Route: 048
  4. ZOCOR [Concomitant]
     Active Substance: SIMVASTATIN
  5. XARELTO [Concomitant]
     Active Substance: RIVAROXABAN
  6. VENTOLIN [Concomitant]
     Active Substance: ALBUTEROL SULFATE
     Dosage: 2 PUFF FOUR TIMES A DAY AS REQUIRED
  7. METFORMIN [Concomitant]
     Active Substance: METFORMIN HYDROCHLORIDE
  8. ALLOPURINOL. [Concomitant]
     Active Substance: ALLOPURINOL
  9. SEEBRI [Concomitant]
     Active Substance: GLYCOPYRRONIUM
  10. LASIX [Concomitant]
     Active Substance: FUROSEMIDE
  11. COLACE [Concomitant]
     Active Substance: DOCUSATE SODIUM
  12. SENOKOT [Concomitant]
     Active Substance: SENNOSIDES

REACTIONS (1)
  - Delirium [Not Recovered/Not Resolved]
